FAERS Safety Report 7293697 (Version 2)
Quarter: 2013Q4

REPORT INFORMATION
  Report Type: Spontaneous
  Country: US (occurrence: None)
  Receive Date: 20100203
  Receipt Date: 20131226
  Transmission Date: 20140711
  Serious: Yes (Other)
  Sender: FDA-Public Use
  Company Number: 2010S1000450

PATIENT
  Age: 68 Year
  Sex: Male
  Weight: 90.72 kg

DRUGS (11)
  1. FLEET PHOSPHO-SODA [Suspect]
     Indication: COLONOSCOPY
     Dosage: PO
     Route: 048
     Dates: start: 20030429, end: 20030429
  2. PROTONIX (PANTOPRAZOLE SODIUM SESQUIHYDRATE) [Concomitant]
  3. VIOXX (ROFECOXIB) [Concomitant]
  4. METHOTREXATE (METHOTREXATE) [Concomitant]
  5. FOLIC ACID (FOLIC ACID) [Concomitant]
  6. PREDNISONE (PREDNISONE) (3 MILLIGRAM) [Concomitant]
  7. ATENOLOL (ATENOLOL) [Concomitant]
  8. LISINOPRIL (LISINOPRIL) [Concomitant]
  9. PRAVACHOL (PRAVASTATIN SODIUM) [Concomitant]
  10. FLONASE (FLUTICASONE PROPIONATE) [Concomitant]
  11. FLOMAX (TAMSULOSIN HYDROCHLORIDE) [Concomitant]

REACTIONS (1)
  - Renal impairment [None]
